FAERS Safety Report 23216334 (Version 2)
Quarter: 2023Q4

REPORT INFORMATION
  Report Type: Spontaneous
  Country: JP (occurrence: JP)
  Receive Date: 20231122
  Receipt Date: 20231201
  Transmission Date: 20240110
  Serious: Yes (Other)
  Sender: FDA-Public Use
  Company Number: JP-BAXTER-2023BAX034716

PATIENT
  Age: 57 Year
  Sex: Male

DRUGS (3)
  1. DIANEAL LOW CALCIUM PERITONEAL DIALYSIS SOLUTION WITH DEXTROSE [Suspect]
     Active Substance: CALCIUM CHLORIDE\DEXTROSE\MAGNESIUM CHLORIDE\SODIUM CHLORIDE\SODIUM LACTATE
     Indication: Chronic kidney disease
     Dosage: PD INDUCTION, NEUTRAL SOLUTION 1.5% 1.5L (4 TIMES)
     Route: 033
  2. DIANEAL LOW CALCIUM PERITONEAL DIALYSIS SOLUTION WITH DEXTROSE [Suspect]
     Active Substance: CALCIUM CHLORIDE\DEXTROSE\MAGNESIUM CHLORIDE\SODIUM CHLORIDE\SODIUM LACTATE
     Dosage: PD INDUCTION, NEUTRAL SOLUTION 1.5% 1.5L (3 TIMES)
     Route: 033
  3. DIANEAL LOW CALCIUM PERITONEAL DIALYSIS SOLUTION WITH DEXTROSE [Suspect]
     Active Substance: CALCIUM CHLORIDE\DEXTROSE\MAGNESIUM CHLORIDE\SODIUM CHLORIDE\SODIUM LACTATE
     Dosage: PD INDUCTION, NEUTRAL SOLUTION 1.5% 1.5L (4 TIMES)
     Route: 033

REACTIONS (6)
  - Peritoneal fibrosis [Unknown]
  - Peritoneal mesothelial hyperplasia [Unknown]
  - Capillary disorder [Unknown]
  - Inflammation [Unknown]
  - Fibrosis [Unknown]
  - Lymphocytic infiltration [Unknown]
